FAERS Safety Report 11377734 (Version 1)
Quarter: 2015Q3

REPORT INFORMATION
  Report Type: Spontaneous
  Country: US (occurrence: US)
  Receive Date: 20150811
  Receipt Date: 20150811
  Transmission Date: 20151125
  Serious: No
  Sender: FDA-Public Use
  Company Number: US-ELI_LILLY_AND_COMPANY-US200906002284

PATIENT
  Age: 77 Year
  Sex: Female

DRUGS (8)
  1. LANOXIN [Concomitant]
     Active Substance: DIGOXIN
  2. LANTUS [Concomitant]
     Active Substance: INSULIN GLARGINE
  3. HUMULIN N [Suspect]
     Active Substance: INSULIN HUMAN
     Dosage: 30 U, EACH EVENING
     Dates: start: 2009
  4. HUMULIN N [Suspect]
     Active Substance: INSULIN HUMAN
     Indication: TYPE 2 DIABETES MELLITUS
     Dosage: 56 U, EACH MORNING
     Dates: start: 2009
  5. HUMULIN 70/30 [Suspect]
     Active Substance: INSULIN HUMAN
  6. KLOR-CON [Concomitant]
     Active Substance: POTASSIUM CHLORIDE
  7. AVAPRO [Concomitant]
     Active Substance: IRBESARTAN
  8. FUROSEMIDE. [Concomitant]
     Active Substance: FUROSEMIDE

REACTIONS (9)
  - Feeling abnormal [Unknown]
  - Visual acuity reduced [Not Recovered/Not Resolved]
  - Drug ineffective [Unknown]
  - Blood glucose decreased [Recovered/Resolved]
  - Blood glucose increased [Unknown]
  - Tremor [Recovered/Resolved]
  - Diarrhoea [Not Recovered/Not Resolved]
  - Influenza [Recovered/Resolved]
  - Abdominal discomfort [Not Recovered/Not Resolved]

NARRATIVE: CASE EVENT DATE: 2008
